FAERS Safety Report 18366445 (Version 1)
Quarter: 2020Q4

REPORT INFORMATION
  Report Type: Spontaneous
  Country: IT (occurrence: IT)
  Receive Date: 20201009
  Receipt Date: 20201009
  Transmission Date: 20210114
  Serious: Yes (Hospitalization)
  Sender: FDA-Public Use
  Company Number: IT-PFIZER INC-2020386352

PATIENT
  Age: 91 Year
  Sex: Female

DRUGS (1)
  1. METHOTREXATE SODIUM. [Suspect]
     Active Substance: METHOTREXATE SODIUM
     Indication: RHEUMATOID ARTHRITIS
     Dosage: 10 MG, WEEKLY
     Route: 030

REACTIONS (3)
  - Asthenia [Recovering/Resolving]
  - Pancytopenia [Recovering/Resolving]
  - Ecchymosis [Recovering/Resolving]

NARRATIVE: CASE EVENT DATE: 20200913
